FAERS Safety Report 9127097 (Version 1)
Quarter: 2013Q1

REPORT INFORMATION
  Report Type: Spontaneous
  Country: JP (occurrence: JP)
  Receive Date: 20130125
  Receipt Date: 20130125
  Transmission Date: 20140127
  Serious: Yes (Other)
  Sender: FDA-Public Use
  Company Number: JP-SANOFI-AVENTIS-2013SA005996

PATIENT
  Age: 80 Year
  Sex: Female

DRUGS (2)
  1. MYSLEE [Suspect]
     Indication: INSOMNIA
     Route: 048
  2. SEROQUEL [Concomitant]
     Indication: RESTLESSNESS

REACTIONS (2)
  - Apnoea [Recovered/Resolved]
  - Incorrect dose administered [Unknown]
